FAERS Safety Report 5308076-4 (Version None)
Quarter: 2007Q2

REPORT INFORMATION
  Report Type: 
  Country: None (occurrence: None)
  Receive Date: 20070423
  Receipt Date: 20070411
  Transmission Date: 20071010
  Serious: Yes (Hospitalization)
  Sender: FDA-Public Use
  Company Number: 2007BI007936

PATIENT
  Age: 41 Year
  Sex: Male

DRUGS (1)
  1. AVONEX [Suspect]
     Indication: MULTIPLE SCLEROSIS
     Dosage: 30 UG; QW; IM
     Route: 030
     Dates: start: 20011201

REACTIONS (5)
  - ADVERSE DRUG REACTION [None]
  - CARDIAC DISORDER [None]
  - CHEST PAIN [None]
  - HEADACHE [None]
  - NECK PAIN [None]
